FAERS Safety Report 16938669 (Version 3)
Quarter: 2020Q1

REPORT INFORMATION
  Report Type: Spontaneous
  Country: FR (occurrence: FR)
  Receive Date: 20191019
  Receipt Date: 20200221
  Transmission Date: 20200409
  Serious: Yes (Death, Other)
  Sender: FDA-Public Use
  Company Number: NVSC2019FR009459

PATIENT
  Age: 71 Year
  Sex: Male

DRUGS (9)
  1. MYCOPHENOLATE MOFETIL. [Suspect]
     Active Substance: MYCOPHENOLATE MOFETIL
     Indication: LUNG ADENOCARCINOMA
  2. MYCOPHENOLATE MOFETIL. [Suspect]
     Active Substance: MYCOPHENOLATE MOFETIL
     Indication: IMMUNOSUPPRESSANT DRUG THERAPY
  3. SIROLIMUS. [Suspect]
     Active Substance: SIROLIMUS
     Indication: IMMUNOSUPPRESSANT DRUG THERAPY
  4. NIVOLUMAB [Suspect]
     Active Substance: NIVOLUMAB
     Indication: IMMUNOSUPPRESSANT DRUG THERAPY
  5. NIVOLUMAB [Suspect]
     Active Substance: NIVOLUMAB
     Indication: LUNG ADENOCARCINOMA
  6. MYCOPHENOLATE MOFETIL. [Suspect]
     Active Substance: MYCOPHENOLATE MOFETIL
     Indication: RENAL TRANSPLANT
     Dosage: UNK
     Route: 065
  7. SIROLIMUS. [Suspect]
     Active Substance: SIROLIMUS
     Indication: LUNG ADENOCARCINOMA
  8. SIROLIMUS. [Suspect]
     Active Substance: SIROLIMUS
     Indication: RENAL TRANSPLANT
     Dosage: UNK
     Route: 065
  9. NIVOLUMAB [Suspect]
     Active Substance: NIVOLUMAB
     Indication: RENAL TRANSPLANT
     Dosage: 3 MG/KG, BIW (EVERY 15 DAYS) (TOTAL 14 INJECTIONS)
     Route: 065

REACTIONS (5)
  - Chylothorax [Fatal]
  - Lung adenocarcinoma stage IV [Unknown]
  - Intentional product use issue [Unknown]
  - Kidney transplant rejection [Unknown]
  - Malignant neoplasm progression [Unknown]
